FAERS Safety Report 22966905 (Version 4)
Quarter: 2024Q1

REPORT INFORMATION
  Report Type: Spontaneous
  Country: US (occurrence: US)
  Receive Date: 20230921
  Receipt Date: 20240207
  Transmission Date: 20240409
  Serious: Yes (Other)
  Sender: FDA-Public Use
  Company Number: US-PFIZER INC-PV202300158197

PATIENT
  Age: 72 Year
  Sex: Female
  Weight: 57.596 kg

DRUGS (1)
  1. PREMARIN [Suspect]
     Active Substance: ESTROGENS, CONJUGATED
     Indication: Hormone level abnormal
     Dosage: 1.25 MG, 1X/DAY

REACTIONS (3)
  - Tethered oral tissue [Recovered/Resolved]
  - Cerebrovascular accident [Recovered/Resolved]
  - Disturbance in attention [Unknown]
